FAERS Safety Report 19755669 (Version 1)
Quarter: 2021Q3

REPORT INFORMATION
  Report Type: Report from Study
  Country: US (occurrence: US)
  Receive Date: 20210827
  Receipt Date: 20210827
  Transmission Date: 20211014
  Serious: Yes (Hospitalization, Other)
  Sender: FDA-Public Use
  Company Number: US-TAKEDA-US202010379

PATIENT
  Age: 57 Year
  Sex: Female

DRUGS (1)
  1. HUMAN NORMAL IMMUNOGLOBULIN; LIQUID [Suspect]
     Active Substance: HUMAN IMMUNOGLOBULIN G
     Indication: SELECTIVE IGG SUBCLASS DEFICIENCY
     Dosage: 22 GRAMS DAILY FOR 5 DAYS 1X PER MONTH
     Route: 065

REACTIONS (8)
  - Stiff person syndrome [Unknown]
  - Central venous catheterisation [Unknown]
  - Myositis [Unknown]
  - Nasopharyngitis [Unknown]
  - White blood cell count decreased [Unknown]
  - COVID-19 [Unknown]
  - Crohn^s disease [Unknown]
  - Anti-GAD antibody positive [Unknown]

NARRATIVE: CASE EVENT DATE: 202003
